FAERS Safety Report 24684867 (Version 1)
Quarter: 2024Q4

REPORT INFORMATION
  Report Type: Spontaneous
  Country: DE (occurrence: DE)
  Receive Date: 20241202
  Receipt Date: 20241202
  Transmission Date: 20250115
  Serious: Yes (Other)
  Sender: JOHNSON AND JOHNSON
  Company Number: DE-Desitin-2024-02875

PATIENT
  Sex: Female

DRUGS (11)
  1. TOPIRAMATE [Suspect]
     Active Substance: TOPIRAMATE
     Indication: Epilepsy
  2. ETHOSUXIMIDE [Suspect]
     Active Substance: ETHOSUXIMIDE
     Indication: Epilepsy
  3. LAMOTRIGINE [Suspect]
     Active Substance: LAMOTRIGINE
     Indication: Epilepsy
  4. LEVETIRACETAM [Suspect]
     Active Substance: LEVETIRACETAM
     Indication: Epilepsy
  5. VALPROATE [Suspect]
     Active Substance: VALPROIC ACID
     Indication: Epilepsy
  6. CLONAZEPAM [Suspect]
     Active Substance: CLONAZEPAM
     Indication: Epilepsy
  7. SULTHIAME [Suspect]
     Active Substance: SULTHIAME
     Indication: Epilepsy
  8. PERAMPANEL [Suspect]
     Active Substance: PERAMPANEL
     Indication: Epilepsy
  9. BRIVARACETAM [Suspect]
     Active Substance: BRIVARACETAM
     Indication: Epilepsy
  10. ZONISAMIDE [Suspect]
     Active Substance: ZONISAMIDE
     Indication: Epilepsy
  11. PHENOBARBITAL [Suspect]
     Active Substance: PHENOBARBITAL
     Indication: Epilepsy
     Dosage: LOW DOSE

REACTIONS (11)
  - Seizure [Unknown]
  - Seizure [Unknown]
  - Status epilepticus [Unknown]
  - Status epilepticus [Unknown]
  - Fatigue [Unknown]
  - Enuresis [Unknown]
  - Abdominal pain [Unknown]
  - Aggression [Unknown]
  - Cognitive disorder [Unknown]
  - Adverse reaction [Unknown]
  - Apathy [Unknown]
